FAERS Safety Report 4336611-1 (Version None)
Quarter: 2004Q2

REPORT INFORMATION
  Report Type: 
  Country: None (occurrence: None)
  Receive Date: 20040407
  Receipt Date: 20040325
  Transmission Date: 20050107
  Serious: Yes (Other)
  Sender: FDA-Public Use
  Company Number: 205489

PATIENT
  Age: 58 Year
  Sex: Female

DRUGS (14)
  1. HERCEPTIN [Suspect]
     Indication: BREAST CANCER
     Dosage: SEE IMAGE
     Route: 042
  2. TAXOTERE [Suspect]
     Indication: BREAST CANCER
     Dosage: INTRAVENOUS
     Route: 042
  3. CARBOPLATIN [Suspect]
     Indication: BREAST CANCER
     Dosage: INTRAVENOUS
     Route: 042
  4. LIPITOR [Concomitant]
  5. MULTI-VITAMINS [Concomitant]
  6. GLUCOSAMINE (GLUCOSAMINE) [Concomitant]
  7. COMPAZINE [Concomitant]
  8. ATIVAN [Concomitant]
  9. AMBIEN [Concomitant]
  10. SONATA [Concomitant]
  11. ELAVIL [Concomitant]
  12. LEVAQUIN [Concomitant]
  13. MORPHINE [Concomitant]
  14. ZANTAC [Concomitant]

REACTIONS (1)
  - PULMONARY EMBOLISM [None]
